APPROVED DRUG PRODUCT: VASOPRESSIN IN SODIUM CHLORIDE 0.9%
Active Ingredient: VASOPRESSIN
Strength: 40UNITS/100ML (0.4UNITS/ML)
Dosage Form/Route: SOLUTION;INTRAVENOUS
Application: N217766 | Product #002
Applicant: LONG GROVE PHARMACEUTICALS LLC
Approved: Jul 11, 2024 | RLD: Yes | RS: Yes | Type: RX